FAERS Safety Report 20420271 (Version 3)
Quarter: 2022Q1

REPORT INFORMATION
  Report Type: Spontaneous
  Country: JP (occurrence: JP)
  Receive Date: 20220203
  Receipt Date: 20220222
  Transmission Date: 20220423
  Serious: Yes (Hospitalization, Other)
  Sender: FDA-Public Use
  Company Number: JP-ONO-2022JP002564

PATIENT
  Age: 73 Year
  Sex: Male
  Weight: 57.4 kg

DRUGS (14)
  1. OPDIVO [Suspect]
     Active Substance: NIVOLUMAB
     Indication: Gastric cancer
     Dosage: 360 MILLIGRAM
     Route: 041
  2. XELODA [Concomitant]
     Active Substance: CAPECITABINE
     Indication: Gastric cancer
     Dosage: 1,800 MG/DIVIDED INTO 2 DOSES, ORAL ADMINISTRATION FOR 14 CONSECUTIVE DAYS AND SUSPENSION FOR 7 DAYS
     Route: 048
     Dates: start: 20211208
  3. LEVOTHYROXINE [Concomitant]
     Active Substance: LEVOTHYROXINE
     Indication: Hypothyroidism
     Dosage: 100 MICROGRAM, QD
     Route: 048
  4. IOPAMIRON [Concomitant]
     Active Substance: IOPAMIDOL
     Indication: Product used for unknown indication
     Dosage: 100 MILLILITER, AT THE TIME OF CT IMAGING
     Route: 042
     Dates: start: 20170824
  5. HEPARINOID [Concomitant]
     Indication: Dry skin prophylaxis
     Dosage: APPROPRIATE DOSAGE, AS-NEEDED USE
     Route: 061
     Dates: start: 20170828
  6. HEPARINOID [Concomitant]
     Indication: Dry skin
  7. AZILSARTAN KAMEDOXOMIL [Concomitant]
     Active Substance: AZILSARTAN KAMEDOXOMIL
     Indication: Hypertension
     Dosage: 10 MILLIGRAM, QD
     Route: 048
     Dates: start: 20211117
  8. CORTRIL [Concomitant]
     Active Substance: HYDROCORTISONE
     Indication: Adrenal insufficiency
     Dosage: 15-20MG, EVERYDAY
     Route: 048
     Dates: start: 20180328
  9. BILASTINE [Concomitant]
     Active Substance: BILASTINE
     Indication: Pruritus
     Dosage: 20 MILLIGRAM, QD
     Route: 048
     Dates: start: 20180214
  10. MYSER [Concomitant]
     Indication: Palmar-plantar erythrodysaesthesia syndrome
     Dosage: APPROPRIATE DOSAGE, AS-NEEDED USE
     Route: 061
     Dates: start: 20140920
  11. EURAX [Concomitant]
     Active Substance: CROTAMITON
     Indication: Pruritus
     Dosage: APPROPRIATE DOSAGE, AS-NEEDED USE
     Route: 061
     Dates: start: 20190627
  12. NEXIUM [Concomitant]
     Active Substance: ESOMEPRAZOLE MAGNESIUM
     Indication: Gastrooesophageal reflux disease
     Dosage: 20 MILLIGRAM, QD
     Route: 048
     Dates: start: 20191030
  13. LOXOPROFEN SODIUM [Concomitant]
     Active Substance: LOXOPROFEN SODIUM
     Indication: Spinal stenosis
     Dosage: APPROPRIATE DOSAGE, AS-NEEDED USE
     Route: 062
     Dates: start: 20191029
  14. UREA [Concomitant]
     Active Substance: UREA
     Indication: Palmar-plantar erythrodysaesthesia syndrome
     Dosage: APPROPRIATE DOSAGE, AS-NEEDED USE
     Route: 061
     Dates: start: 20191127

REACTIONS (1)
  - Pyelonephritis [Recovered/Resolved]

NARRATIVE: CASE EVENT DATE: 20220126
